FAERS Safety Report 9172227 (Version 1)
Quarter: 2013Q1

REPORT INFORMATION
  Report Type: Report from Study
  Country: US (occurrence: US)
  Receive Date: 20130319
  Receipt Date: 20130319
  Transmission Date: 20140127
  Serious: No
  Sender: FDA-Public Use
  Company Number: US-009507513-1303USA002999

PATIENT
  Sex: Male

DRUGS (3)
  1. VICTRELIS [Suspect]
     Dosage: UNK
  2. RIBAVIRIN (WARRICK) [Suspect]
     Dosage: UNK
     Route: 048
  3. PEGASYS [Suspect]
     Dosage: 180 MICROGRAM, UNK

REACTIONS (5)
  - Influenza like illness [Unknown]
  - Anaemia [Unknown]
  - Diarrhoea [Unknown]
  - Fatigue [Unknown]
  - Nausea [Unknown]
